FAERS Safety Report 9307794 (Version 2)
Quarter: 2013Q2

REPORT INFORMATION
  Report Type: Spontaneous
  Country: US (occurrence: US)
  Receive Date: 20130524
  Receipt Date: 20130618
  Transmission Date: 20140414
  Serious: No
  Sender: FDA-Public Use
  Company Number: US-009507513-1305USA014172

PATIENT
  Sex: Male

DRUGS (5)
  1. PEGINTRON [Suspect]
     Dosage: 180 MG, QW
     Route: 058
     Dates: start: 20130215, end: 20130517
  2. VICTRELIS [Suspect]
     Dosage: 800 MG, Q8H
     Route: 048
     Dates: start: 201303, end: 20130517
  3. PEGASYS [Suspect]
     Dosage: 180 MICROGRAM, QW
  4. REBETOL [Suspect]
     Dosage: 600 MG, QAM
     Route: 048
     Dates: start: 20130215
  5. REBETOL [Suspect]
     Dosage: 400 MG, QPM
     Route: 048
     Dates: start: 20130215

REACTIONS (3)
  - Overdose [Unknown]
  - Drug dose omission [Unknown]
  - No adverse event [Unknown]
